FAERS Safety Report 6108110-8 (Version None)
Quarter: 2009Q1

REPORT INFORMATION
  Report Type: 
  Country: None (occurrence: None)
  Receive Date: 20090304
  Receipt Date: 20080410
  Transmission Date: 20090719
  Serious: Yes (Other)
  Sender: FDA-Public Use
  Company Number: US-000625

PATIENT
  Age: 24 Year
  Sex: Male

DRUGS (5)
  1. ISOVUE-370 [Suspect]
     Indication: COLITIS
     Dosage: 125ML QD INTRAVENOUS
     Route: 042
     Dates: start: 20080327, end: 20080327
  2. ISOVUE-370 [Suspect]
     Indication: COMPUTERISED TOMOGRAM ABDOMEN
     Dosage: 125ML QD INTRAVENOUS
     Route: 042
     Dates: start: 20080327, end: 20080327
  3. ISOVUE-370 [Suspect]
     Indication: HAEMATOCHEZIA
     Dosage: 125ML QD INTRAVENOUS
     Route: 042
     Dates: start: 20080327, end: 20080327
  4. ZOSYN [Concomitant]
  5. FLAGYL [Concomitant]

REACTIONS (1)
  - ANAPHYLACTOID REACTION [None]
